FAERS Safety Report 7906362-2 (Version None)
Quarter: 2011Q4

REPORT INFORMATION
  Report Type: 
  Country: None (occurrence: None)
  Receive Date: 20111110
  Receipt Date: 20111013
  Transmission Date: 20120403
  Serious: No
  Sender: FDA-Public Use
  Company Number: US-BAYER-2011-099546

PATIENT
  Sex: Female

DRUGS (2)
  1. SSRI [Concomitant]
     Dosage: UNK
     Dates: start: 20110822
  2. MIRENA [Suspect]
     Indication: CONTRACEPTION
     Dosage: DAILY DOSE 20 PG
     Route: 015
     Dates: start: 20110919, end: 20110928

REACTIONS (2)
  - MOOD SWINGS [None]
  - ANXIETY [None]
